FAERS Safety Report 4365615-8 (Version None)
Quarter: 2004Q2

REPORT INFORMATION
  Report Type: 
  Country: None (occurrence: None)
  Receive Date: 20040520
  Receipt Date: 20040511
  Transmission Date: 20050107
  Serious: Yes (Death, Hospitalization)
  Sender: FDA-Public Use
  Company Number: US-JNJFOC-20040202995

PATIENT
  Age: 72 Year
  Sex: Male
  Weight: 93.8946 kg

DRUGS (2)
  1. DITROPAN XL [Suspect]
     Indication: URINARY INCONTINENCE
     Dosage: 5 MG, 1 IN 1 DAY, ORAL
     Route: 048
     Dates: start: 20030207, end: 20040207
  2. MORE THAN 10 UNSPECIFIED CONCOMITANT MEDICATIONS (ALL OTHER THERAPEUTI [Concomitant]

REACTIONS (3)
  - DYSPNOEA [None]
  - LIVER DISORDER [None]
  - MENTAL STATUS CHANGES [None]
